FAERS Safety Report 5719012-0 (Version None)
Quarter: 2008Q2

REPORT INFORMATION
  Report Type: 
  Country: None (occurrence: None)
  Receive Date: 20080425
  Receipt Date: 20080417
  Transmission Date: 20081010
  Serious: Yes (Other)
  Sender: FDA-Public Use
  Company Number: PHHY2008CH05990

PATIENT
  Sex: Female

DRUGS (2)
  1. DESFERAL [Suspect]
  2. EXJADE [Suspect]

REACTIONS (1)
  - MULTIPLE FRACTURES [None]
